FAERS Safety Report 6728623-5 (Version None)
Quarter: 2010Q2

REPORT INFORMATION
  Report Type: 
  Country: None (occurrence: None)
  Receive Date: 20100517
  Receipt Date: 20100504
  Transmission Date: 20101027
  Serious: Yes (Hospitalization)
  Sender: FDA-Public Use
  Company Number: US-ELI_LILLY_AND_COMPANY-US201005002059

PATIENT
  Age: 47 Year
  Sex: Female

DRUGS (12)
  1. CYMBALTA [Suspect]
     Indication: DIABETIC NEUROPATHY
     Dosage: 60 MG, DAILY (1/D)
     Route: 048
     Dates: start: 20100201
  2. HUMALOG [Suspect]
     Indication: DIABETES MELLITUS
     Dosage: 1.75 D/F, UNK
     Route: 058
  3. HUMALOG [Suspect]
     Dosage: 1.3 D/F, UNK
     Route: 058
  4. LASIX [Concomitant]
     Dosage: 20 MG, DAILY (1/D)
  5. SYNTHROID [Concomitant]
     Dosage: 0.88 UG, DAILY (1/D)
  6. LISINOPRIL [Concomitant]
     Dosage: 40 MG, DAILY (1/D)
  7. ATENOLOL [Concomitant]
     Dosage: 100 MG, DAILY (1/D)
  8. VICODIN ES [Concomitant]
     Dosage: 1 D/F, 2/D
  9. FLEXERIL [Concomitant]
     Dosage: 10 MG, 2/D
  10. XANAX [Concomitant]
     Dosage: 0.5 MG, EACH EVENING
  11. ASPIRIN [Concomitant]
     Dosage: 1 D/F, DAILY (1/D)
  12. MOTRIN [Concomitant]
     Dosage: 600 D/F, AS NEEDED

REACTIONS (5)
  - BLOOD GLUCOSE DECREASED [None]
  - HAEMORRHAGE [None]
  - HYSTERECTOMY [None]
  - SKIN DISCOLOURATION [None]
  - THIRST [None]
